FAERS Safety Report 12892389 (Version 1)
Quarter: 2016Q4

REPORT INFORMATION
  Report Type: Report from Study
  Country: US (occurrence: US)
  Receive Date: 20161028
  Receipt Date: 20161028
  Transmission Date: 20170207
  Serious: Yes (Death, Hospitalization)
  Sender: FDA-Public Use
  Company Number: US-BAYER-2016-172941

PATIENT
  Age: 45 Year
  Sex: Female

DRUGS (1)
  1. ADEMPAS [Suspect]
     Active Substance: RIOCIGUAT
     Indication: PULMONARY HYPERTENSION
     Dosage: 0.5 MG, TID
     Route: 048
     Dates: start: 20160811, end: 20160906

REACTIONS (4)
  - Death [Fatal]
  - Dyspnoea [None]
  - Hospitalisation [None]
  - Oedema [None]

NARRATIVE: CASE EVENT DATE: 20160830
